FAERS Safety Report 19267600 (Version 3)
Quarter: 2022Q4

REPORT INFORMATION
  Report Type: Report from Study
  Country: AR (occurrence: AR)
  Receive Date: 20210517
  Receipt Date: 20221212
  Transmission Date: 20230113
  Serious: Yes (Hospitalization, Other)
  Sender: FDA-Public Use
  Company Number: AR-NOVARTISPH-NVSC2021AR107834

PATIENT
  Sex: Female

DRUGS (8)
  1. GLYCOPYRRONIUM\INDACATEROL [Suspect]
     Active Substance: GLYCOPYRRONIUM\INDACATEROL
     Indication: Emphysema
     Dosage: 1 DOSAGE FORM, QD
     Dates: start: 2015
  2. GLYCOPYRRONIUM\INDACATEROL [Suspect]
     Active Substance: GLYCOPYRRONIUM\INDACATEROL
     Indication: Chronic obstructive pulmonary disease
     Dosage: 1 DOSAGE FORM, QD
  3. BUDESONIDE\FORMOTEROL [Concomitant]
     Active Substance: BUDESONIDE\FORMOTEROL
     Indication: Product used for unknown indication
     Dosage: UNK (STARTED SINCE 1 MONTH AGO)
     Route: 065
  4. ALBUTEROL [Concomitant]
     Active Substance: ALBUTEROL
     Indication: Product used for unknown indication
     Dosage: UNK
     Route: 065
     Dates: start: 2012
  5. CORBIS D [Concomitant]
     Indication: Product used for unknown indication
     Dosage: UNK (STARTED SINCE 25 YEARS AGO)
     Route: 065
  6. VALSARTAN [Concomitant]
     Active Substance: VALSARTAN
     Indication: Product used for unknown indication
     Dosage: 180 UNK (STARTED SINCE 1 YEAR AGO)
     Route: 065
  7. TAFIROL [Concomitant]
     Indication: Product used for unknown indication
     Dosage: 1 GR, PRN
     Route: 065
  8. ASPIRIN [Concomitant]
     Active Substance: ASPIRIN
     Indication: Product used for unknown indication
     Dosage: 1 DOSAGE FORM, QD (STARTED SINCE 20 YEARS AGO)
     Route: 065

REACTIONS (6)
  - Lung neoplasm malignant [Unknown]
  - Adenocarcinoma [Unknown]
  - Neoplasm [Unknown]
  - Bronchitis [Unknown]
  - Overweight [Unknown]
  - Fatigue [Unknown]
